FAERS Safety Report 10275759 (Version 1)
Quarter: 2014Q3

REPORT INFORMATION
  Report Type: Spontaneous
  Country: US (occurrence: US)
  Receive Date: 20140703
  Receipt Date: 20140703
  Transmission Date: 20150326
  Serious: Yes (Life-Threatening)
  Sender: FDA-Public Use
  Company Number: US-BAYER-2014-100158

PATIENT
  Age: 49 Year
  Sex: Female

DRUGS (4)
  1. YASMIN [Suspect]
     Active Substance: DROSPIRENONE\ETHINYL ESTRADIOL
     Dosage: UNK
     Dates: start: 2005, end: 2008
  2. DROSPIRENONE W/ETHINYLESTRADIOL [Suspect]
     Active Substance: DROSPIRENONE\ETHINYL ESTRADIOL
     Dosage: UNK
     Dates: start: 20120101, end: 20120621
  3. GIANVI [Suspect]
     Active Substance: DROSPIRENONE\ETHINYL ESTRADIOL
     Dosage: UNK
     Dates: start: 20101014, end: 2012
  4. YAZ [Suspect]
     Active Substance: DROSPIRENONE\ETHINYL ESTRADIOL
     Dosage: UNK
     Dates: start: 2008, end: 2011

REACTIONS (8)
  - Pulmonary embolism [None]
  - Pain [None]
  - Emotional distress [None]
  - Fear of death [None]
  - Nervousness [None]
  - Depression [None]
  - Injury [None]
  - Deep vein thrombosis [None]

NARRATIVE: CASE EVENT DATE: 20120621
